FAERS Safety Report 7145999-8 (Version None)
Quarter: 2010Q4

REPORT INFORMATION
  Report Type: 
  Country: None (occurrence: None)
  Receive Date: 20101208
  Receipt Date: 20101130
  Transmission Date: 20110411
  Serious: Yes (Other)
  Sender: FDA-Public Use
  Company Number: CH-US-EMD SERONO, INC.-7016479

PATIENT
  Sex: Male

DRUGS (6)
  1. REBIF [Suspect]
     Indication: MULTIPLE SCLEROSIS
     Dosage: MULTIDOSE
     Route: 058
     Dates: start: 20100722, end: 20100820
  2. REBIF [Suspect]
     Route: 058
     Dates: start: 20100820, end: 20100901
  3. REBIF [Suspect]
     Route: 058
     Dates: start: 20100919
  4. VIDE3 [Concomitant]
     Indication: VITAMIN D DEFICIENCY
     Route: 048
     Dates: start: 20100701
  5. VIDE3 [Concomitant]
     Indication: MULTIPLE SCLEROSIS
  6. IBUPROFEN [Concomitant]
     Indication: PROPHYLAXIS
     Route: 048
     Dates: start: 20100701

REACTIONS (1)
  - ANAEMIA MACROCYTIC [None]
